FAERS Safety Report 8008318-0 (Version None)
Quarter: 2011Q4

REPORT INFORMATION
  Report Type: 
  Country: None (occurrence: None)
  Receive Date: 20111227
  Receipt Date: 20111215
  Transmission Date: 20120403
  Serious: Yes (Hospitalization)
  Sender: FDA-Public Use
  Company Number: JP-ASTRAZENECA-2011SE51622

PATIENT
  Age: 39 Year
  Sex: Female
  Weight: 52 kg

DRUGS (8)
  1. ROPIVACAINE HYDROCHLORIDE [Suspect]
     Indication: NERVE BLOCK
     Route: 053
     Dates: start: 20110825, end: 20110825
  2. MIDAZOLAM [Concomitant]
     Indication: SEDATION
     Route: 042
     Dates: start: 20110825, end: 20110825
  3. DROPERIDOL [Concomitant]
     Indication: NAUSEA
     Route: 042
     Dates: start: 20110825, end: 20110825
  4. FENTANYL [Concomitant]
     Indication: SPINAL ANAESTHESIA
     Route: 029
     Dates: start: 20110825, end: 20110825
  5. MARCAINE HYDROCHLORIDE PRESERVATIVE FREE [Concomitant]
     Indication: SPINAL ANAESTHESIA
     Route: 029
     Dates: start: 20110825, end: 20110825
  6. PRIMPERAN TAB [Concomitant]
     Indication: NAUSEA
     Route: 042
     Dates: start: 20110825, end: 20110825
  7. ROCURONIUM BROMIDE [Concomitant]
     Indication: HYPOTONIA
     Route: 042
     Dates: start: 20110825, end: 20110825
  8. RITODRINE HYDROCHLORIDE [Concomitant]
     Indication: THREATENED LABOUR
     Route: 048
     Dates: start: 20110614, end: 20110825

REACTIONS (1)
  - POISONING [None]
